FAERS Safety Report 9720193 (Version 3)
Quarter: 2013Q4

REPORT INFORMATION
  Report Type: Report from Study
  Country: CA (occurrence: CA)
  Receive Date: 20131129
  Receipt Date: 20131221
  Transmission Date: 20140711
  Serious: Yes (Hospitalization, Other)
  Sender: FDA-Public Use
  Company Number: CA-ROCHE-1276764

PATIENT
  Age: 61 Year
  Sex: Male

DRUGS (5)
  1. PEGASYS [Suspect]
     Indication: CHRONIC HEPATITIS C
     Route: 058
     Dates: start: 20130815
  2. COPEGUS [Suspect]
     Indication: CHRONIC HEPATITIS C
     Route: 048
     Dates: start: 20130815
  3. VICTRELIS [Suspect]
     Indication: CHRONIC HEPATITIS C
     Route: 048
     Dates: start: 20130905
  4. FLORINEF [Concomitant]
  5. TECTA [Concomitant]

REACTIONS (5)
  - Syncope [Not Recovered/Not Resolved]
  - Hypotension [Not Recovered/Not Resolved]
  - Gingivitis [Not Recovered/Not Resolved]
  - Buccal mucosal roughening [Not Recovered/Not Resolved]
  - Pollakiuria [Not Recovered/Not Resolved]
